FAERS Safety Report 17272466 (Version 1)
Quarter: 2020Q1

REPORT INFORMATION
  Report Type: Spontaneous
  Country: US (occurrence: US)
  Receive Date: 20200114
  Receipt Date: 20200114
  Transmission Date: 20200409
  Serious: Yes (Other)
  Sender: FDA-Public Use
  Company Number: None

PATIENT
  Age: 57 Year
  Sex: Male
  Weight: 130.5 kg

DRUGS (1)
  1. ELIQUIS [Suspect]
     Active Substance: APIXABAN
     Indication: THROMBOSIS
     Dosage: ?          QUANTITY:60 TABLET(S);?
     Route: 048
     Dates: start: 20191231, end: 20200110

REACTIONS (9)
  - Hypertension [None]
  - Palpitations [None]
  - Bronchitis viral [None]
  - Blood magnesium decreased [None]
  - Lip swelling [None]
  - Wheezing [None]
  - Drug ineffective [None]
  - Drug hypersensitivity [None]
  - Weight decreased [None]

NARRATIVE: CASE EVENT DATE: 20191231
